FAERS Safety Report 9503223 (Version 1)
Quarter: 2013Q3

REPORT INFORMATION
  Report Type: Spontaneous
  Country: US (occurrence: US)
  Receive Date: 20130906
  Receipt Date: 20130906
  Transmission Date: 20140515
  Serious: Yes (Hospitalization, Other)
  Sender: FDA-Public Use
  Company Number: US-PFIZER INC-2013256167

PATIENT
  Age: 55 Year
  Sex: Female
  Weight: 79.37 kg

DRUGS (6)
  1. OXYCODONE HYDROCHLORIDE [Suspect]
     Dosage: UNK
  2. ALPRAZOLAM [Suspect]
     Indication: ANXIETY DISORDER
     Dosage: 2 MG, 3X/DAY
  3. ALPRAZOLAM [Suspect]
     Dosage: 3 MG, 3X/DAY
  4. CYMBALTA [Concomitant]
     Dosage: 30 MG, 3X/DAY
  5. RISPERDAL [Concomitant]
     Dosage: 1 MG, 3X/DAY
  6. BENICAR [Concomitant]
     Indication: HYPERTENSION
     Dosage: ^40/25MG^ ONCE DAILY

REACTIONS (4)
  - Drug withdrawal syndrome [Unknown]
  - Self injurious behaviour [Unknown]
  - Psychotic disorder [Unknown]
  - Drug ineffective [Unknown]
